FAERS Safety Report 5207726-0 (Version None)
Quarter: 2006Q4

REPORT INFORMATION
  Report Type: 
  Country: None (occurrence: None)
  Receive Date: 20061030
  Receipt Date: 20060922
  Transmission Date: 20070319
  Serious: No
  Sender: FDA-Public Use
  Company Number: 2006CT000726

PATIENT
  Age: 47 Year
  Sex: Female
  Weight: 58.9676 kg

DRUGS (9)
  1. VENTAVIS [Suspect]
     Indication: PULMONARY HYPERTENSION
     Dosage: 5 UG; 6XD; INH
     Route: 055
     Dates: start: 20060316, end: 20060922
  2. METFORMIN HCL [Concomitant]
  3. DIGOXIN [Concomitant]
  4. WARFARIN SODIUM [Concomitant]
  5. BENZONATATE [Concomitant]
  6. SPIRONOLACTONE [Concomitant]
  7. BUMETANIDE [Concomitant]
  8. SILDENAFIL CITRATE [Concomitant]
  9. TRACLEER [Concomitant]

REACTIONS (3)
  - COUGH [None]
  - DRY MOUTH [None]
  - DRY THROAT [None]
